FAERS Safety Report 7524929-0 (Version None)
Quarter: 2011Q2

REPORT INFORMATION
  Report Type: 
  Country: None (occurrence: None)
  Receive Date: 20110602
  Receipt Date: 20110602
  Transmission Date: 20111010
  Serious: Yes (Hospitalization)
  Sender: FDA-Public Use
  Company Number: None

PATIENT
  Age: 62 Year
  Sex: Male
  Weight: 69 kg

DRUGS (2)
  1. ETOPOSIDE [Suspect]
     Indication: LUNG NEOPLASM MALIGNANT
     Dosage: 180 MG EVERY DAY IV
     Route: 042
     Dates: start: 20110517, end: 20110519
  2. CISPLATIN [Suspect]
     Indication: LUNG NEOPLASM MALIGNANT
     Dosage: 110 MG ONCE IV
     Route: 042
     Dates: start: 20110517, end: 20110517

REACTIONS (1)
  - FEBRILE NEUTROPENIA [None]
